FAERS Safety Report 7327641-6 (Version None)
Quarter: 2011Q1

REPORT INFORMATION
  Report Type: 
  Country: None (occurrence: None)
  Receive Date: 20110303
  Receipt Date: 20100908
  Transmission Date: 20110831
  Serious: Yes (Hospitalization, Other)
  Sender: FDA-Public Use
  Company Number: US-BAYER-201019734NA

PATIENT
  Sex: Female
  Weight: 126.98 kg

DRUGS (6)
  1. NSAID'S [Concomitant]
  2. YASMIN [Suspect]
     Indication: PRODUCT USED FOR UNKNOWN INDICATION
     Route: 048
  3. YAZ [Suspect]
     Indication: PREMENSTRUAL SYNDROME
     Dosage: UNK
     Route: 048
     Dates: start: 20070101, end: 20080201
  4. ZONEGRAN [Concomitant]
  5. XANAX [Concomitant]
     Indication: PRODUCT USED FOR UNKNOWN INDICATION
  6. KEPPRA [Concomitant]
     Indication: PRODUCT USED FOR UNKNOWN INDICATION

REACTIONS (7)
  - PULMONARY EMBOLISM [None]
  - OEDEMA PERIPHERAL [None]
  - ADVERSE EVENT [None]
  - SINUS BRADYCARDIA [None]
  - DYSPNOEA [None]
  - DYSPNOEA EXERTIONAL [None]
  - THROMBOSIS [None]
